FAERS Safety Report 8791862 (Version 1)
Quarter: 2012Q4

REPORT INFORMATION
  Report Type: 
  Country: US (occurrence: US)
  Receive Date: 20120918
  Receipt Date: 20120918
  Transmission Date: 20130627
  Serious: Yes (Other)
  Sender: FDA-Public Use
  Company Number: US-ELI_LILLY_AND_COMPANY-US201209001779

PATIENT
  Age: 89 Year
  Sex: Female

DRUGS (3)
  1. HUMALOG LISPRO [Suspect]
     Indication: TYPE 1 DIABETES MELLITUS
     Dosage: 12 u, tid
     Dates: start: 2011
  2. HUMALOG LISPRO [Suspect]
     Dosage: UNK, prn
     Dates: start: 2011
  3. LANTUS [Concomitant]
     Indication: TYPE 1 DIABETES MELLITUS
     Dosage: 15 u, each evening

REACTIONS (1)
  - Blood glucose increased [Recovered/Resolved]
